FAERS Safety Report 8575234-5 (Version None)
Quarter: 2012Q3

REPORT INFORMATION
  Report Type: 
  Country: None (occurrence: None)
  Receive Date: 20120807
  Receipt Date: 20120730
  Transmission Date: 20120928
  Serious: Yes (Other)
  Sender: FDA-Public Use
  Company Number: US-JNJFOC-20120609105

PATIENT
  Sex: Female

DRUGS (7)
  1. EFFEXOR [Concomitant]
     Route: 065
  2. UNSPECIFIED OTC MEDICATIONS [Concomitant]
     Route: 065
  3. LISINOPRIL AND HYDROCHLOROTHIAZIDE [Concomitant]
     Route: 065
  4. REMICADE [Suspect]
     Indication: CROHN'S DISEASE
     Route: 042
  5. NORVASC [Concomitant]
     Route: 065
  6. IMITREX [Concomitant]
     Route: 065
  7. M.V.I. [Concomitant]
     Route: 065

REACTIONS (2)
  - ACINETOBACTER INFECTION [None]
  - SKIN CANCER [None]
